FAERS Safety Report 4489916-8 (Version None)
Quarter: 2004Q4

REPORT INFORMATION
  Report Type: 
  Country: None (occurrence: None)
  Receive Date: 20041026
  Receipt Date: 20041008
  Transmission Date: 20050328
  Serious: Yes (Hospitalization)
  Sender: FDA-Public Use
  Company Number: DSA_25191_2004

PATIENT
  Age: 45 Year
  Sex: Male

DRUGS (1)
  1. ENALAPRIL MALEATE [Suspect]
     Dosage: DF PO
     Route: 048
     Dates: start: 20040705, end: 20040705

REACTIONS (2)
  - ANGIONEUROTIC OEDEMA [None]
  - CARDIOGENIC SHOCK [None]
